FAERS Safety Report 5521620-7 (Version None)
Quarter: 2007Q4

REPORT INFORMATION
  Report Type: 
  Country: None (occurrence: None)
  Receive Date: 20071119
  Receipt Date: 20071119
  Transmission Date: 20080405
  Serious: No
  Sender: FDA-Public Use
  Company Number: None

PATIENT
  Age: 33 Year
  Sex: Male

DRUGS (1)
  1. AMIKIN [Suspect]
     Dosage: INTRAVENOUS
     Route: 042
     Dates: start: 20071114, end: 20071114

REACTIONS (1)
  - TINNITUS [None]
